FAERS Safety Report 25920168 (Version 1)
Quarter: 2025Q4

REPORT INFORMATION
  Report Type: Spontaneous
  Country: EU (occurrence: EU)
  Receive Date: 20251014
  Receipt Date: 20251014
  Transmission Date: 20260117
  Serious: Yes (Hospitalization, Other)
  Sender: ALEXION PHARMACEUTICALS
  Company Number: None

PATIENT
  Age: 4 Month
  Sex: Female

DRUGS (1)
  1. NIRSEVIMAB [Suspect]
     Active Substance: NIRSEVIMAB
     Indication: Immunisation
     Dosage: 1 DF
     Route: 065
     Dates: start: 20240916, end: 20240916

REACTIONS (6)
  - Bronchiolitis [Recovered/Resolved]
  - Polymerase chain reaction positive [Recovered/Resolved]
  - Oxygen therapy [Recovered/Resolved]
  - Oxygen therapy [Recovered/Resolved]
  - Gastrointestinal tube insertion [Recovered/Resolved]
  - Drug ineffective [Recovered/Resolved]

NARRATIVE: CASE EVENT DATE: 20241231
